FAERS Safety Report 22588778 (Version 1)
Quarter: 2023Q2

REPORT INFORMATION
  Report Type: Report from Study
  Country: US (occurrence: US)
  Receive Date: 20230612
  Receipt Date: 20230612
  Transmission Date: 20230721
  Serious: Yes (Other)
  Sender: FDA-Public Use
  Company Number: US-BAYER-2023A081562

PATIENT

DRUGS (2)
  1. LAROTRECTINIB [Suspect]
     Active Substance: LAROTRECTINIB
     Indication: Congenital fibrosarcoma
     Dosage: 100 MG/M2/DOSE BID (MAX OF 100 MG/DOSE) CONTINUOUSLY IN 28-DAY CYCLES
  2. LAROTRECTINIB [Suspect]
     Active Substance: LAROTRECTINIB
     Indication: NTRK gene fusion positive

REACTIONS (1)
  - Weight decreased [None]
